FAERS Safety Report 7675906-0 (Version None)
Quarter: 2011Q3

REPORT INFORMATION
  Report Type: 
  Country: None (occurrence: None)
  Receive Date: 20110811
  Receipt Date: 20110803
  Transmission Date: 20111222
  Serious: Yes (Hospitalization)
  Sender: FDA-Public Use
  Company Number: US-BIOGENIDEC-2010BI023903

PATIENT
  Age: 51 Year
  Sex: Female

DRUGS (2)
  1. AVONEX [Suspect]
     Indication: MULTIPLE SCLEROSIS
     Route: 030
     Dates: start: 19990129, end: 20030701
  2. AVONEX [Suspect]
     Route: 030
     Dates: start: 20040202

REACTIONS (6)
  - DYSURIA [None]
  - INTESTINAL OBSTRUCTION [None]
  - FAECALOMA [None]
  - MULTIPLE SCLEROSIS RELAPSE [None]
  - FATIGUE [None]
  - ABDOMINAL DISTENSION [None]
